FAERS Safety Report 9802408 (Version 2)
Quarter: 2014Q1

REPORT INFORMATION
  Report Type: Report from Study
  Country: US (occurrence: US)
  Receive Date: 20140107
  Receipt Date: 20140107
  Transmission Date: 20141002
  Serious: Yes (Life-Threatening, Disabling, Other)
  Sender: FDA-Public Use
  Company Number: US-BRISTOL-MYERS SQUIBB COMPANY-14775670

PATIENT
  Age: 31 Year
  Sex: Female
  Weight: 82.8 kg

DRUGS (9)
  1. IPILIMUMAB [Suspect]
     Indication: MALIGNANT MELANOMA
     Dosage: 10 MG/KG STARTED ON 18FEB2009.(800 MG)?786 MILLIGRAMS
     Route: 042
     Dates: start: 20090218, end: 20090421
  2. LOMOTIL [Concomitant]
     Dosage: 1 DOSAGE FORM = 0.025/2.5 MG.
     Route: 048
     Dates: start: 20090421
  3. ETHINYL ESTRADIOL + LEVONORGESTREL [Concomitant]
     Route: 048
     Dates: start: 20090402
  4. PRENATAL [Concomitant]
     Dates: start: 20090102
  5. FOLIC ACID [Concomitant]
     Dosage: 1 DOSAGE FORM = 1 TAB.
     Route: 048
     Dates: start: 20090102
  6. IMODIUM [Concomitant]
     Indication: DIARRHOEA
     Dates: start: 20090226
  7. ATROPINE [Concomitant]
     Dates: start: 20090421
  8. MULTIVITAMIN [Concomitant]
     Dates: start: 20090102
  9. HYDROCORTISONE [Concomitant]
     Route: 048
     Dates: start: 20090518

REACTIONS (1)
  - Hypophysitis [Recovered/Resolved with Sequelae]
